FAERS Safety Report 16320669 (Version 1)
Quarter: 2019Q2

REPORT INFORMATION
  Report Type: Report from Study
  Country: DE (occurrence: DE)
  Receive Date: 20190516
  Receipt Date: 20190516
  Transmission Date: 20190711
  Serious: Yes (Other)
  Sender: FDA-Public Use
  Company Number: PHHY2019DE064794

PATIENT
  Sex: Female

DRUGS (7)
  1. RAMIPRIL. [Suspect]
     Active Substance: RAMIPRIL
     Dosage: 5 MG, (AT THE MORNING), QD
     Route: 065
     Dates: start: 20160905, end: 20161206
  2. VIACORAM [Concomitant]
     Active Substance: AMLODIPINE BESYLATE\PERINDOPRIL ARGININE
     Indication: HYPERTENSION
     Dosage: 7 MG/ 5 MG
     Dates: start: 20170401
  3. GILENYA [Suspect]
     Active Substance: FINGOLIMOD HYDROCHLORIDE
     Indication: MULTIPLE SCLEROSIS
     Dosage: 0.5 MG, QD
     Route: 048
     Dates: start: 20160616
  4. RAMIPRIL. [Suspect]
     Active Substance: RAMIPRIL
     Dosage: 10 MG, (AT THE MORNING), QD
     Route: 065
     Dates: start: 20161207, end: 20170401
  5. MIRTAZAPINE. [Concomitant]
     Active Substance: MIRTAZAPINE
     Indication: SLEEP DISORDER
     Dosage: 15 MG, UNK
     Route: 065
  6. RAMIPRIL. [Suspect]
     Active Substance: RAMIPRIL
     Indication: HYPERTENSION
     Dosage: 2.5 MG,QD (AT THE MORNING)
     Route: 065
     Dates: start: 20160822, end: 20160904
  7. KALINOR [Concomitant]
     Indication: HYPERTENSION
     Dosage: 1.56 G, QD
     Route: 065
     Dates: start: 20161208, end: 20161212

REACTIONS (3)
  - Multiple sclerosis relapse [Recovered/Resolved]
  - Central nervous system lesion [Unknown]
  - Hypokalaemia [Unknown]
